FAERS Safety Report 5126367-7 (Version None)
Quarter: 2006Q4

REPORT INFORMATION
  Report Type: 
  Country: None (occurrence: None)
  Receive Date: 20061010
  Receipt Date: 20060927
  Transmission Date: 20070319
  Serious: Yes (Death)
  Sender: FDA-Public Use
  Company Number: 06H-163-0310535-00

PATIENT
  Age: 18 Year
  Sex: Male

DRUGS (4)
  1. DIPHENHYDRAMINE HCL [Suspect]
  2. QUETIAPINE FUMARATE [Suspect]
  3. BUPROPION HCL [Suspect]
  4. CARBAMAZEPINE [Suspect]

REACTIONS (2)
  - COMPLETED SUICIDE [None]
  - DRUG TOXICITY [None]
